FAERS Safety Report 19428136 (Version 1)
Quarter: 2021Q2

REPORT INFORMATION
  Report Type: Spontaneous
  Country: DE (occurrence: DE)
  Receive Date: 20210616
  Receipt Date: 20210616
  Transmission Date: 20210717
  Serious: Yes (Hospitalization)
  Sender: FDA-Public Use
  Company Number: DE-AUROBINDO-AUR-APL-2021-025144

PATIENT
  Sex: Female
  Weight: 78 kg

DRUGS (4)
  1. KISQALI [Suspect]
     Active Substance: RIBOCICLIB
     Dosage: UNK
     Route: 065
     Dates: start: 20210302
  2. KISQALI [Suspect]
     Active Substance: RIBOCICLIB
     Indication: BREAST CANCER METASTATIC
     Dosage: 600 MG, QD (DAILY DOSE) (SCHEMA 21 DAYS INTAKE, 7 DAYS PAUSE)
     Route: 048
     Dates: start: 20200314, end: 20200828
  3. KISQALI [Suspect]
     Active Substance: RIBOCICLIB
     Dosage: 400 MG, QD (DAILY DOSE) (SCHEMA 21 DAYS INTAKE, 7 DAYS PAUSE)
     Route: 048
     Dates: start: 20200829, end: 20201223
  4. LETROZOLE. [Suspect]
     Active Substance: LETROZOLE
     Indication: BREAST CANCER METASTATIC
     Dosage: 2.5 MG, QD (DAILY DOSE)
     Route: 048
     Dates: start: 20200314

REACTIONS (14)
  - Asthenia [Unknown]
  - Dyspnoea [Unknown]
  - Diarrhoea [Unknown]
  - Pyrexia [Unknown]
  - COVID-19 [Recovered/Resolved]
  - Pain [Unknown]
  - Sleep disorder [Unknown]
  - Appetite disorder [Unknown]
  - Arthralgia [Unknown]
  - Alopecia [Unknown]
  - Nausea [Unknown]
  - Blood count abnormal [Unknown]
  - Illness [Unknown]
  - Vomiting [Unknown]

NARRATIVE: CASE EVENT DATE: 20201220
